FAERS Safety Report 18335614 (Version 1)
Quarter: 2020Q4

REPORT INFORMATION
  Report Type: Spontaneous
  Country: US (occurrence: US)
  Receive Date: 20201001
  Receipt Date: 20201001
  Transmission Date: 20210113
  Serious: No
  Sender: FDA-Public Use
  Company Number: US-TEVA-2020-US-1835600

PATIENT
  Sex: Female

DRUGS (7)
  1. CLONIDINE. [Suspect]
     Active Substance: CLONIDINE
     Route: 048
  2. METOPROLOL. [Concomitant]
     Active Substance: METOPROLOL
  3. LOSARTAN. [Concomitant]
     Active Substance: LOSARTAN
  4. FLECAINIDE [Concomitant]
     Active Substance: FLECAINIDE
  5. SPIRONOLACTONE. [Concomitant]
     Active Substance: SPIRONOLACTONE
  6. XARELTO [Concomitant]
     Active Substance: RIVAROXABAN
  7. VITAMIN B12 [Concomitant]
     Active Substance: CYANOCOBALAMIN

REACTIONS (1)
  - Dry mouth [Unknown]
